FAERS Safety Report 25757959 (Version 4)
Quarter: 2025Q4

REPORT INFORMATION
  Report Type: Report from Study
  Country: EU (occurrence: EU)
  Receive Date: 20250903
  Receipt Date: 20251020
  Transmission Date: 20260119
  Serious: Yes (Hospitalization)
  Sender: ABBVIE
  Company Number: EU-ABBVIE-6440250

PATIENT
  Age: 76 Year
  Sex: Male
  Weight: 64 kg

DRUGS (10)
  1. CARBIDOPA [Suspect]
     Active Substance: CARBIDOPA
     Indication: Parkinson^s disease
     Dosage: MD: 7.0 ML; CRD: 3.4ML/H; ED: 1.0ML/HR
     Route: 050
     Dates: start: 20170801
  2. CARBIDOPA [Suspect]
     Active Substance: CARBIDOPA
     Dosage: MD: 7.0 ML; DUODOPA PUMP 6AM TO 10PM CRD: 3.2ML/H; ED: 1.0ML/HR?DOSE REDUCED
     Route: 050
  3. VALSARTAN [Concomitant]
     Active Substance: VALSARTAN
     Indication: Product used for unknown indication
  4. HYDROCHLOROTHIAZIDE [Concomitant]
     Active Substance: HYDROCHLOROTHIAZIDE
     Indication: Product used for unknown indication
  5. METOPROLOL [Concomitant]
     Active Substance: METOPROLOL
     Indication: Product used for unknown indication
  6. GASTROZEPIN [Concomitant]
     Active Substance: PIRENZEPINE HYDROCHLORIDE
     Indication: Product used for unknown indication
  7. L DOPA [Concomitant]
     Active Substance: LEVODOPA
     Indication: Product used for unknown indication
     Dosage: 100/25MG
  8. NEUPRO [Concomitant]
     Active Substance: ROTIGOTINE
     Indication: Product used for unknown indication
     Dosage: PATCH
  9. CARBIDOPA\LEVODOPA [Concomitant]
     Active Substance: CARBIDOPA\LEVODOPA
     Indication: Product used for unknown indication
  10. CARBIDOPA\LEVODOPA [Concomitant]
     Active Substance: CARBIDOPA\LEVODOPA
     Indication: Product used for unknown indication
     Dosage: PROLONGED RELEASE

REACTIONS (34)
  - Fall [Recovered/Resolved]
  - Device dislocation [Recovered/Resolved]
  - Mobility decreased [Unknown]
  - Parkinson^s disease [Unknown]
  - Investigation abnormal [Unknown]
  - Hypertension [Unknown]
  - Vitamin B12 deficiency [Unknown]
  - Cognitive disorder [Unknown]
  - Salivary hypersecretion [Unknown]
  - Stoma site discharge [Unknown]
  - Stoma site odour [Unknown]
  - Dropped head syndrome [Unknown]
  - Reduced facial expression [Unknown]
  - Dysarthria [Unknown]
  - Muscle rigidity [Unknown]
  - Hyperkinesia [Unknown]
  - Hyporeflexia [Unknown]
  - Parkinsonian gait [Unknown]
  - Camptocormia [Unknown]
  - Mood altered [Unknown]
  - Impaired driving ability [Unknown]
  - Device placement issue [Unknown]
  - Parkinsonism [Unknown]
  - Bacteriuria [Unknown]
  - Conjunctivitis [Recovered/Resolved]
  - Dry skin [Unknown]
  - Device issue [Unknown]
  - Erythema [Unknown]
  - Fistula [Unknown]
  - Chromaturia [Unknown]
  - Urine odour abnormal [Unknown]
  - Immobile [Unknown]
  - Inguinal hernia [Unknown]
  - Stoma site inflammation [Not Recovered/Not Resolved]

NARRATIVE: CASE EVENT DATE: 20190101
